FAERS Safety Report 24315634 (Version 1)
Quarter: 2024Q3

REPORT INFORMATION
  Report Type: Spontaneous
  Country: US (occurrence: US)
  Receive Date: 20240913
  Receipt Date: 20240913
  Transmission Date: 20241017
  Serious: No
  Sender: BIOGEN
  Company Number: US-BIOGEN-2018BI00546025

PATIENT
  Sex: Female

DRUGS (1)
  1. TECFIDERA [Suspect]
     Active Substance: DIMETHYL FUMARATE
     Indication: Relapsing-remitting multiple sclerosis
     Route: 050
     Dates: start: 20171020

REACTIONS (4)
  - Drug ineffective [Unknown]
  - Gait disturbance [Unknown]
  - Knee deformity [Unknown]
  - Multiple sclerosis relapse [Unknown]
